FAERS Safety Report 4289578-9 (Version None)
Quarter: 2004Q1

REPORT INFORMATION
  Report Type: 
  Country: None (occurrence: None)
  Receive Date: 20040127
  Receipt Date: 20030711
  Transmission Date: 20041129
  Serious: Yes (Hospitalization)
  Sender: FDA-Public Use
  Company Number: TAP2003Q01660

PATIENT
  Age: 71 Year
  Sex: Male

DRUGS (7)
  1. PREVAC (LANSOPRAZOLE, CLARITHROMYCIN, AMOXICILLIN) [Suspect]
     Indication: HELICOBACTER INFECTION
     Dosage: 0.5 CARD, 2 IN 1 D, ORAL
     Route: 048
     Dates: start: 20030707, end: 20030709
  2. ADVAIR (SERETIDEMTIE) [Concomitant]
  3. LIPITOR [Concomitant]
  4. NASONEX [Concomitant]
  5. TIMOLOL MALEATE [Concomitant]
  6. LOTEMAX (LOTEPREDNOL ETABONATE) [Concomitant]
  7. PREVACID [Concomitant]

REACTIONS (9)
  - ASTHENIA [None]
  - CHEST PAIN [None]
  - COLD SWEAT [None]
  - DIZZINESS [None]
  - DYSGEUSIA [None]
  - DYSPNOEA [None]
  - HEART RATE INCREASED [None]
  - MUSCLE CRAMP [None]
  - SINUS PAIN [None]
